FAERS Safety Report 17828045 (Version 1)
Quarter: 2020Q2

REPORT INFORMATION
  Report Type: Spontaneous
  Country: US (occurrence: US)
  Receive Date: 20200527
  Receipt Date: 20200527
  Transmission Date: 20200714
  Serious: No
  Sender: FDA-Public Use
  Company Number: US-MYLANLABS-2020M1050545

PATIENT
  Age: 43 Year
  Sex: Male
  Weight: 77 kg

DRUGS (1)
  1. HALOPERIDOL TABLETS, USP [Suspect]
     Active Substance: HALOPERIDOL
     Indication: AGGRESSION
     Dosage: UNK, QD
     Route: 048

REACTIONS (4)
  - Testicular swelling [Not Recovered/Not Resolved]
  - Testicular mass [Not Recovered/Not Resolved]
  - Infection [Recovering/Resolving]
  - Appetite disorder [Recovered/Resolved]

NARRATIVE: CASE EVENT DATE: 20200318
